FAERS Safety Report 5002887-0 (Version None)
Quarter: 2006Q2

REPORT INFORMATION
  Report Type: 
  Country: None (occurrence: None)
  Receive Date: 20060512
  Receipt Date: 20060504
  Transmission Date: 20061013
  Serious: Yes (Other)
  Sender: FDA-Public Use
  Company Number: 2006RL000161

PATIENT

DRUGS (2)
  1. OMACOR [Suspect]
     Indication: HYPERTRIGLYCERIDAEMIA
     Dosage: PO
     Route: 048
  2. AMINOCAPROIC ACID [Concomitant]

REACTIONS (2)
  - DRUG DISPENSING ERROR [None]
  - WRONG DRUG ADMINISTERED [None]
